FAERS Safety Report 5729080-8 (Version None)
Quarter: 2008Q2

REPORT INFORMATION
  Report Type: 
  Country: None (occurrence: None)
  Receive Date: 20080506
  Receipt Date: 20080424
  Transmission Date: 20081010
  Serious: Yes (Other)
  Sender: FDA-Public Use
  Company Number: US-PFIZER INC-2008011301

PATIENT
  Sex: Male

DRUGS (1)
  1. CHANTIX [Suspect]
     Indication: EX-SMOKER

REACTIONS (5)
  - ANXIETY [None]
  - DEPRESSION [None]
  - MEDICATION ERROR [None]
  - PANIC DISORDER [None]
  - SUICIDAL IDEATION [None]
